FAERS Safety Report 4492390-9 (Version None)
Quarter: 2004Q4

REPORT INFORMATION
  Report Type: 
  Country: None (occurrence: None)
  Receive Date: 20041102
  Receipt Date: 20041102
  Transmission Date: 20050328
  Serious: Yes (Hospitalization)
  Sender: FDA-Public Use
  Company Number: None

PATIENT
  Age: 48 Year
  Sex: Male
  Weight: 97 kg

DRUGS (8)
  1. MONOPRIL [Suspect]
     Indication: HYPERTENSION
     Dosage: 20 MG PO QD
     Route: 048
  2. THIAMINE [Concomitant]
  3. REGLAN [Concomitant]
  4. ZANTAC [Concomitant]
  5. FOLATE [Concomitant]
  6. MAGNESIUM OXIDE [Concomitant]
  7. PREVACID [Concomitant]
  8. MVT [Concomitant]

REACTIONS (1)
  - ANGIONEUROTIC OEDEMA [None]
